FAERS Safety Report 8727793 (Version 2)
Quarter: 2012Q4

REPORT INFORMATION
  Report Type: 
  Country: US (occurrence: US)
  Receive Date: 20120816
  Receipt Date: 20120913
  Transmission Date: 20130627
  Serious: Yes (Other)
  Sender: FDA-Public Use
  Company Number: US-PFIZER INC-2012197609

PATIENT
  Age: 45 Year
  Sex: Female
  Weight: 70.3 kg

DRUGS (4)
  1. LYRICA [Suspect]
     Indication: FIBROMYALGIA
     Dosage: 75 mg, 3x/day
  2. LYRICA [Suspect]
     Dosage: 75 mg, 2x/day
  3. TOPROL XL [Concomitant]
     Indication: SUPRAVENTRICULAR TACHYCARDIA
     Dosage: 100 mg, daily
  4. ESTRADIOL [Concomitant]
     Indication: HYSTERECTOMY
     Dosage: 1 mg, daily

REACTIONS (4)
  - Weight increased [Unknown]
  - Somnolence [Unknown]
  - Fatigue [Unknown]
  - Hyperphagia [Unknown]
